FAERS Safety Report 6762352-7 (Version None)
Quarter: 2010Q2

REPORT INFORMATION
  Report Type: 
  Country: None (occurrence: None)
  Receive Date: 20100609
  Receipt Date: 20100602
  Transmission Date: 20101027
  Serious: Yes (Hospitalization)
  Sender: FDA-Public Use
  Company Number: JP-ROCHE-681864

PATIENT
  Sex: Female

DRUGS (9)
  1. TOCILIZUMAB [Suspect]
     Indication: RHEUMATOID ARTHRITIS
     Route: 041
     Dates: start: 20090710, end: 20090710
  2. TOCILIZUMAB [Suspect]
     Route: 041
     Dates: start: 20090807, end: 20090807
  3. TOCILIZUMAB [Suspect]
     Route: 041
     Dates: start: 20090904, end: 20090904
  4. TOCILIZUMAB [Suspect]
     Route: 041
     Dates: start: 20091002, end: 20091002
  5. TOCILIZUMAB [Suspect]
     Route: 041
     Dates: start: 20091030, end: 20091030
  6. TOCILIZUMAB [Suspect]
     Route: 041
     Dates: start: 20091127, end: 20091129
  7. TOCILIZUMAB [Suspect]
     Route: 041
     Dates: start: 20091225, end: 20091225
  8. RHEUMATREX [Suspect]
     Indication: RHEUMATOID ARTHRITIS
     Route: 048
  9. FIRSTCIN [Concomitant]
     Route: 041
     Dates: start: 20100124, end: 20100128

REACTIONS (1)
  - INTERSTITIAL LUNG DISEASE [None]
